FAERS Safety Report 6278442-1 (Version None)
Quarter: 2009Q3

REPORT INFORMATION
  Report Type: 
  Country: None (occurrence: None)
  Receive Date: 20090722
  Receipt Date: 20090716
  Transmission Date: 20100115
  Serious: Yes (Other)
  Sender: FDA-Public Use
  Company Number: JP-GENENTECH-287123

PATIENT
  Age: 82 Year
  Sex: Male

DRUGS (4)
  1. RITUXIMAB [Suspect]
     Indication: LYMPHOMA
     Dosage: UNK
     Route: 065
  2. CYCLOPHOSPHAMIDE [Concomitant]
     Indication: LYMPHOMA
  3. VINCRISTINE SULFATE [Concomitant]
     Indication: LYMPHOMA
  4. PREDNISOLONE [Concomitant]
     Indication: LYMPHOMA

REACTIONS (1)
  - INTERSTITIAL LUNG DISEASE [None]
